FAERS Safety Report 19290021 (Version 1)
Quarter: 2021Q2

REPORT INFORMATION
  Report Type: Spontaneous
  Country: US (occurrence: US)
  Receive Date: 20210521
  Receipt Date: 20210521
  Transmission Date: 20210717
  Serious: No
  Sender: FDA-Public Use
  Company Number: US-RADIUS HEALTH INC.-2020US003109

PATIENT
  Age: 71 Year
  Sex: Female

DRUGS (3)
  1. TYMLOS [Suspect]
     Active Substance: ABALOPARATIDE
     Indication: OSTEOPENIA
     Dosage: 80MCG/QD
     Route: 058
     Dates: start: 20200717
  2. CALCIUM [Concomitant]
     Active Substance: CALCIUM
     Indication: SUPPLEMENTATION THERAPY
     Dosage: 300/225MG, UNK
  3. VITAMIN D 2000 [Concomitant]
     Active Substance: VITAMIN D NOS
     Indication: PRODUCT USED FOR UNKNOWN INDICATION
     Dosage: 1000MG, BID

REACTIONS (11)
  - Blood calcium increased [Recovered/Resolved]
  - Headache [Unknown]
  - Hypertension [Unknown]
  - Nausea [Unknown]
  - Abdominal pain upper [Unknown]
  - Dry skin [Unknown]
  - Respiration abnormal [Unknown]
  - Arthralgia [Unknown]
  - Blood pressure fluctuation [Unknown]
  - Rash [Unknown]
  - Impaired healing [Unknown]

NARRATIVE: CASE EVENT DATE: 20200719
